FAERS Safety Report 23350613 (Version 1)
Quarter: 2023Q4

REPORT INFORMATION
  Report Type: Spontaneous
  Country: EG (occurrence: EG)
  Receive Date: 20231229
  Receipt Date: 20231229
  Transmission Date: 20240109
  Serious: Yes (Other)
  Sender: FDA-Public Use
  Company Number: EG-HIKMA PHARMACEUTICALS-EG-H14001-23-68472

PATIENT
  Age: 62 Year
  Sex: Male
  Weight: 92 kg

DRUGS (1)
  1. DOCETAXEL [Suspect]
     Active Substance: DOCETAXEL\DOCETAXEL ANHYDROUS
     Indication: Prostate cancer
     Dosage: 142 MILLIGRAM, 3W
     Route: 041

REACTIONS (5)
  - Haemoglobin decreased [Recovered/Resolved]
  - Hypochromic anaemia [Recovered/Resolved]
  - Anisocytosis [Recovered/Resolved]
  - Red blood cell count decreased [Recovered/Resolved]
  - Red cell distribution width increased [Recovered/Resolved]
